FAERS Safety Report 8371596-2 (Version None)
Quarter: 2012Q2

REPORT INFORMATION
  Report Type: 
  Country: None (occurrence: None)
  Receive Date: 20120518
  Receipt Date: 20120511
  Transmission Date: 20120825
  Serious: Yes (Other)
  Sender: FDA-Public Use
  Company Number: SE-ABBOTT-12P-150-0935361-00

PATIENT
  Sex: Female

DRUGS (2)
  1. CLONAZEPAM [Suspect]
     Indication: EPILEPSY
     Route: 048
     Dates: end: 20100417
  2. VALPROATE SODIUM [Suspect]
     Indication: EPILEPSY
     Dates: end: 20100417

REACTIONS (1)
  - PRE-ECLAMPSIA [None]
